FAERS Safety Report 11750381 (Version 2)
Quarter: 2015Q4

REPORT INFORMATION
  Report Type: Report from Study
  Country: US (occurrence: US)
  Receive Date: 20151118
  Receipt Date: 20151123
  Transmission Date: 20160304
  Serious: Yes (Hospitalization)
  Sender: FDA-Public Use
  Company Number: PHHO2015US012801

PATIENT
  Age: 55 Year
  Sex: Male

DRUGS (21)
  1. PREDNISONE. [Concomitant]
     Active Substance: PREDNISONE
     Indication: IMMUNOSUPPRESSION
     Dosage: 10 MG, QD
     Route: 048
     Dates: start: 20150720
  2. OMEPRAZOL [Concomitant]
     Active Substance: OMEPRAZOLE
     Indication: ANTACID THERAPY
     Dosage: 20 MG, BID
     Route: 048
     Dates: start: 20150720
  3. TYVASO [Concomitant]
     Active Substance: TREPROSTINIL
     Indication: PRODUCT USED FOR UNKNOWN INDICATION
     Dosage: 6 DF, QID (6 PUFFS)
     Route: 048
     Dates: start: 20150721, end: 20151006
  4. ASPIRIN. [Concomitant]
     Active Substance: ASPIRIN
     Indication: PRODUCT USED FOR UNKNOWN INDICATION
     Dosage: 81 MG, QD
     Route: 048
     Dates: start: 20150720, end: 20151006
  5. AMLODIPINE [Concomitant]
     Active Substance: AMLODIPINE BESYLATE
     Indication: HYPERTENSION
     Dosage: 10 MG, QD
     Route: 048
     Dates: start: 20150717
  6. OXYCODONE [Concomitant]
     Active Substance: OXYCODONE
     Indication: PAIN
     Dosage: 330 MG, (5/325) PRN
     Route: 065
     Dates: start: 20150717
  7. SENOKOT [Concomitant]
     Active Substance: SENNOSIDES
     Indication: LAXATIVE SUPPORTIVE CARE
     Dosage: 2 DF (2 TABS), QD
     Route: 048
     Dates: start: 20150717
  8. PREDNISONE. [Concomitant]
     Active Substance: PREDNISONE
     Indication: LIVER TRANSPLANT
     Dosage: 1.5 MG, QD
     Route: 048
     Dates: start: 20150807, end: 20151006
  9. ACYCLOVIR. [Concomitant]
     Active Substance: ACYCLOVIR
     Indication: CYTOMEGALOVIRUS INFECTION
     Dosage: 400 MG, BID
     Route: 048
     Dates: start: 20150522
  10. ADCIRCA [Concomitant]
     Active Substance: TADALAFIL
     Indication: PULMONARY HYPERTENSION
     Dosage: 20 MG, BID
     Route: 048
     Dates: start: 20150522, end: 20151006
  11. TYVASO [Concomitant]
     Active Substance: TREPROSTINIL
     Indication: PULMONARY HYPERTENSION
  12. CERTICAN [Suspect]
     Active Substance: EVEROLIMUS
     Indication: LIVER TRANSPLANT
     Dosage: 2.25 MG, BID
     Route: 048
     Dates: start: 20150724
  13. MACITENTAN [Concomitant]
     Active Substance: MACITENTAN
     Indication: PULMONARY HYPERTENSION
     Dosage: 10 MG, QD
     Route: 048
     Dates: start: 20150527, end: 20151006
  14. BACTRIM DS [Concomitant]
     Active Substance: SULFAMETHOXAZOLE\TRIMETHOPRIM
     Indication: ANTIBIOTIC THERAPY
     Dosage: 800 MG, MWF
     Route: 048
     Dates: start: 20150720
  15. SULFAMETHOXAZOLE AND TRIMETHOPRIM [Concomitant]
     Active Substance: SULFAMETHOXAZOLE\TRIMETHOPRIM
     Indication: PRODUCT USED FOR UNKNOWN INDICATION
     Dosage: UNK( 160-800 MG 3X/WEEK)
     Route: 048
     Dates: start: 20150716, end: 20151006
  16. SERTRALINE [Concomitant]
     Active Substance: SERTRALINE HYDROCHLORIDE
     Indication: POST-TRAUMATIC STRESS DISORDER
     Dosage: 50 MG, QD
     Route: 048
     Dates: start: 20150717
  17. FUROSEMIDE. [Concomitant]
     Active Substance: FUROSEMIDE
     Indication: OEDEMA
  18. SERTRALINE [Concomitant]
     Active Substance: SERTRALINE HYDROCHLORIDE
     Indication: DEPRESSION
     Dosage: 100 MG, QD
     Route: 048
     Dates: start: 20151007
  19. TACROLIMUS. [Suspect]
     Active Substance: TACROLIMUS
     Indication: LIVER TRANSPLANT
     Dosage: 0.5 MG, BID
     Route: 048
     Dates: start: 20150807
  20. FUROSEMIDE. [Concomitant]
     Active Substance: FUROSEMIDE
     Indication: ASCITES
     Dosage: 40 MG, QD
     Route: 048
     Dates: start: 20140618, end: 20151006
  21. POLYETHYLENE [Concomitant]
     Active Substance: HIGH DENSITY POLYETHYLENE
     Indication: LAXATIVE SUPPORTIVE CARE
     Dosage: 17 MG, PRN
     Route: 048
     Dates: start: 20150707

REACTIONS (4)
  - Blood creatinine increased [Recovered/Resolved]
  - Ascites [Recovered/Resolved]
  - Clostridium difficile infection [Recovered/Resolved]
  - Acute kidney injury [Recovered/Resolved]

NARRATIVE: CASE EVENT DATE: 20150803
